FAERS Safety Report 23089786 (Version 2)
Quarter: 2023Q4

REPORT INFORMATION
  Report Type: Report from Study
  Country: US (occurrence: US)
  Receive Date: 20231020
  Receipt Date: 20231220
  Transmission Date: 20240110
  Serious: No
  Sender: FDA-Public Use
  Company Number: US-002147023-NVSC2023US223781

PATIENT
  Sex: Male

DRUGS (1)
  1. ENTRESTO [Suspect]
     Active Substance: SACUBITRIL\VALSARTAN
     Indication: Product used for unknown indication
     Dosage: UNK, BID
     Route: 048
     Dates: start: 202306

REACTIONS (8)
  - Blood potassium increased [Unknown]
  - Weight bearing difficulty [Unknown]
  - Sinus disorder [Unknown]
  - Dyspnoea [Unknown]
  - Cough [Unknown]
  - Sneezing [Unknown]
  - Hypersensitivity [Unknown]
  - Oedema peripheral [Unknown]
